FAERS Safety Report 9191110 (Version 2)
Quarter: 2013Q2

REPORT INFORMATION
  Report Type: Report from Study
  Country: JP (occurrence: JP)
  Receive Date: 20130326
  Receipt Date: 20130423
  Transmission Date: 20140414
  Serious: Yes (Death, Life-Threatening, Other)
  Sender: FDA-Public Use
  Company Number: JP-ROCHE-1174434

PATIENT
  Age: 0 Year
  Sex: Male

DRUGS (17)
  1. DORNASE ALFA [Suspect]
     Indication: CYSTIC FIBROSIS
     Dosage: DOSAGE IS UNCERTAIN
     Route: 055
     Dates: start: 20120827, end: 20121111
  2. ZOSYN [Concomitant]
     Route: 042
     Dates: start: 20120826, end: 20120829
  3. ZOSYN [Concomitant]
     Route: 042
     Dates: start: 20120911, end: 20120914
  4. ZOSYN [Concomitant]
     Route: 042
     Dates: start: 20121003, end: 20121005
  5. ELNEOPA [Concomitant]
     Indication: CYSTIC FIBROSIS
     Dosage: 72 TO 288ML
     Route: 042
     Dates: start: 20120825, end: 20121111
  6. MEROPEN (JAPAN) [Concomitant]
     Route: 042
     Dates: start: 20120829, end: 20120911
  7. BACTRAMIN [Concomitant]
     Route: 042
     Dates: start: 20120903, end: 20121018
  8. TOBRACIN [Concomitant]
     Route: 042
     Dates: start: 20120911, end: 20121015
  9. TOBRACIN [Concomitant]
     Route: 042
     Dates: start: 20121022
  10. FIRSTCIN [Concomitant]
     Route: 042
     Dates: start: 20120914, end: 20120916
  11. CRAVIT [Concomitant]
     Route: 042
     Dates: start: 20120917, end: 20121005
  12. MODACIN [Concomitant]
     Route: 042
     Dates: start: 20121005, end: 20121111
  13. MINOPEN [Concomitant]
     Route: 042
     Dates: start: 20121018, end: 20121111
  14. VANCOMYCIN [Concomitant]
     Route: 042
     Dates: start: 20121019, end: 20121107
  15. AZITHROMYCIN HYDRATE [Concomitant]
     Route: 042
     Dates: start: 20121024, end: 20121026
  16. AMIKACIN SULFATE [Concomitant]
     Route: 042
     Dates: start: 20121029, end: 20121110
  17. PANCRELIPASE [Concomitant]
     Indication: CYSTIC FIBROSIS
     Route: 048
     Dates: start: 20120816, end: 20121111

REACTIONS (10)
  - Pneumonia [Fatal]
  - Respiratory failure [Fatal]
  - Blood pressure decreased [Fatal]
  - Bradycardia [Recovered/Resolved]
  - Renal failure [Not Recovered/Not Resolved]
  - Sepsis [Recovered/Resolved]
  - Pneumothorax [Not Recovered/Not Resolved]
  - Ascites [Recovering/Resolving]
  - Respiratory tract infection [Recovering/Resolving]
  - Pseudomonas infection [Recovering/Resolving]
